FAERS Safety Report 5164950-3 (Version None)
Quarter: 2006Q4

REPORT INFORMATION
  Report Type: 
  Country: None (occurrence: None)
  Receive Date: 20061127
  Receipt Date: 20061116
  Transmission Date: 20070319
  Serious: Yes (Hospitalization)
  Sender: FDA-Public Use
  Company Number: 2006BI014294

PATIENT
  Age: 54 Year
  Sex: Female
  Weight: 48.5349 kg

DRUGS (12)
  1. AVONEX [Suspect]
     Indication: MULTIPLE SCLEROSIS
     Dosage: 30 UG; QW; IM
     Route: 030
     Dates: start: 19970101, end: 20030801
  2. AVONEX [Suspect]
     Indication: MULTIPLE SCLEROSIS
     Dosage: 30 UG; QW; IM
     Route: 030
     Dates: start: 20030801
  3. CORGARD [Concomitant]
  4. LIORESAL [Concomitant]
  5. DITROPAN [Concomitant]
  6. PREVACID [Concomitant]
  7. PERI-COLACE [Concomitant]
  8. PAMELOR [Concomitant]
  9. VALIUM [Concomitant]
  10. NORGESIC FORTE [Concomitant]
  11. IMITREX [Concomitant]
  12. SYNTHROID [Concomitant]

REACTIONS (8)
  - ABSCESS LIMB [None]
  - BURNING SENSATION [None]
  - CELLULITIS [None]
  - CONDITION AGGRAVATED [None]
  - INJECTION SITE ABSCESS [None]
  - MULTIPLE SCLEROSIS [None]
  - STAPHYLOCOCCAL INFECTION [None]
  - THROMBOSIS [None]
